FAERS Safety Report 20975871 (Version 2)
Quarter: 2022Q2

REPORT INFORMATION
  Report Type: Spontaneous
  Country: NL (occurrence: NL)
  Receive Date: 20220617
  Receipt Date: 20220622
  Transmission Date: 20220721
  Serious: Yes (Other)
  Sender: FDA-Public Use
  Company Number: None

PATIENT
  Sex: Female
  Weight: 68 kg

DRUGS (1)
  1. CYTOTEC [Suspect]
     Active Substance: MISOPROSTOL
     Indication: Abortion induced
     Dosage: 1 X 2 PIECES (INSERTED VAGINALLY)
     Route: 067

REACTIONS (4)
  - Retained placenta or membranes [Recovered/Resolved]
  - Postpartum haemorrhage [Unknown]
  - Off label use [Unknown]
  - Off label use [Unknown]
